FAERS Safety Report 8958244 (Version 1)
Quarter: 2012Q4

REPORT INFORMATION
  Report Type: Report from Study
  Country: US (occurrence: US)
  Receive Date: 20121211
  Receipt Date: 20121211
  Transmission Date: 20130627
  Serious: Yes (Other)
  Sender: FDA-Public Use
  Company Number: US-SANOFI-AVENTIS-2012SA089284

PATIENT
  Sex: Female

DRUGS (4)
  1. RIFAPENTINE [Suspect]
     Indication: TUBERCULOSIS
     Dosage: 900 mg or 600 mg
     Route: 065
  2. RIFAPENTINE [Suspect]
     Indication: TUBERCULOSIS
     Route: 065
  3. ISONIAZID [Suspect]
     Indication: TUBERCULOSIS
     Route: 065
  4. ISONIAZID [Suspect]
     Indication: TUBERCULOSIS
     Route: 065

REACTIONS (1)
  - Abortion spontaneous [Unknown]
